FAERS Safety Report 25088034 (Version 1)
Quarter: 2025Q1

REPORT INFORMATION
  Report Type: Spontaneous
  Country: DE (occurrence: DE)
  Receive Date: 20250318
  Receipt Date: 20250318
  Transmission Date: 20250408
  Serious: Yes (Other)
  Sender: Kenvue
  Company Number: DE-PROCTER+GAMBLE-PH25001451

PATIENT

DRUGS (2)
  1. CETIRIZINE HYDROCHLORIDE [Suspect]
     Active Substance: CETIRIZINE HYDROCHLORIDE
     Indication: Product used for unknown indication
     Dosage: 12 TABLET, 1 ONLY, CETIRIZINE 10
     Route: 048
     Dates: start: 20250220, end: 20250220
  2. ACETAMINOPHEN\DEXTROMETHORPHAN HYDROBROMIDE\DOXYLAMINE SUCCINATE\EPHED [Suspect]
     Active Substance: ACETAMINOPHEN\DEXTROMETHORPHAN HYDROBROMIDE\DOXYLAMINE SUCCINATE\EPHEDRINE
     Indication: Product used for unknown indication
     Dosage: 90 MILLILITER, 1 ONLY
     Route: 048
     Dates: start: 20250220, end: 20250220

REACTIONS (4)
  - Suicide attempt [Unknown]
  - Intentional self-injury [Unknown]
  - Agitation [Unknown]
  - Restlessness [Unknown]

NARRATIVE: CASE EVENT DATE: 20250220
